FAERS Safety Report 7574563-1 (Version None)
Quarter: 2011Q2

REPORT INFORMATION
  Report Type: 
  Country: None (occurrence: None)
  Receive Date: 20110627
  Receipt Date: 20090528
  Transmission Date: 20111010
  Serious: Yes (Hospitalization, Other)
  Sender: FDA-Public Use
  Company Number: US-BAYER-200921800NA

PATIENT
  Age: 49 Year
  Sex: Female
  Weight: 103.86 kg

DRUGS (20)
  1. TOPROL-XL [Concomitant]
     Dosage: 50 MG, QD
     Route: 048
  2. LEVAQUIN [Concomitant]
     Dosage: 500 MG
     Route: 042
  3. TRASYLOL [Suspect]
     Indication: CORONARY ARTERY BYPASS
     Dosage: 1 ML, ONCE, INTIAL TEST DOSE
     Route: 042
     Dates: start: 20060816
  4. GLUCOVANCE [Concomitant]
     Dosage: 5/500 MG DAILY
     Route: 048
  5. HUMULIN 70/30 [Concomitant]
     Dosage: 15 UNITS
  6. KAYEXALATE [Concomitant]
     Dosage: UNK
     Dates: start: 20060817
  7. LOVENOX [Concomitant]
     Dosage: 80 MG, BID
     Route: 058
  8. HEPARIN [Concomitant]
     Dosage: 30,000 UNITS
     Route: 042
  9. CALCIUM CHLORIDE [Concomitant]
     Dosage: 1 AMP
     Route: 042
  10. TRASYLOL [Suspect]
     Indication: AORTIC VALVE REPLACEMENT
     Dosage: 200 ML LOADING DOSE
     Route: 042
     Dates: start: 20060816
  11. LISINOPRIL [Concomitant]
     Dosage: 20 MG, QD
     Route: 048
  12. LASIX [Concomitant]
     Dosage: 20 MG, QD
     Route: 048
  13. ACETYLSALICYLIC ACID SRT [Concomitant]
     Dosage: 81 MG, QD
     Route: 048
  14. ARANESP [Concomitant]
     Dosage: 100 MCG/24HR, UNK
     Route: 048
  15. BICARBONAT [Concomitant]
     Dosage: 50 MILLIEQUIVALENTS
  16. RED BLOOD CELLS [Concomitant]
     Dosage: 500 ML, ONCE
     Route: 042
     Dates: start: 20060816
  17. CADUET [Concomitant]
     Dosage: 10/40 MG DAILY
     Route: 048
  18. ATIVAN [Concomitant]
     Dosage: 1 MG, QD
     Route: 048
  19. VERSED [Concomitant]
     Route: 042
  20. TRASYLOL [Suspect]
     Dosage: 50 M DRIP PER HOUR
     Route: 042
     Dates: start: 20060816

REACTIONS (5)
  - INJURY [None]
  - UNEVALUABLE EVENT [None]
  - RENAL FAILURE ACUTE [None]
  - RENAL FAILURE [None]
  - PAIN [None]
